FAERS Safety Report 9098971 (Version 1)
Quarter: 2013Q1

REPORT INFORMATION
  Report Type: Spontaneous
  Country: FR (occurrence: FR)
  Receive Date: 20130213
  Receipt Date: 20130213
  Transmission Date: 20140127
  Serious: Yes (Other)
  Sender: FDA-Public Use
  Company Number: FR-JNJFOC-20130202629

PATIENT
  Sex: Female

DRUGS (2)
  1. XARELTO [Suspect]
     Indication: VENOUS THROMBOSIS
     Route: 065
  2. XARELTO [Suspect]
     Indication: VENOUS THROMBOSIS
     Route: 065

REACTIONS (2)
  - Thrombosis [Unknown]
  - Drug ineffective [Unknown]
